FAERS Safety Report 24904166 (Version 1)
Quarter: 2025Q1

REPORT INFORMATION
  Report Type: Spontaneous
  Country: VN (occurrence: VN)
  Receive Date: 20250130
  Receipt Date: 20250130
  Transmission Date: 20250409
  Serious: Yes (Life-Threatening, Hospitalization)
  Sender: STRIDES
  Company Number: VN-STRIDES ARCOLAB LIMITED-2025SP001396

PATIENT
  Age: 39 Year
  Sex: Female

DRUGS (3)
  1. AZITHROMYCIN [Suspect]
     Active Substance: AZITHROMYCIN
     Indication: Bronchiectasis
     Route: 065
  2. AZITHROMYCIN [Suspect]
     Active Substance: AZITHROMYCIN
     Route: 065
  3. INFLUENZA VIRUS VACCINE [Concomitant]
     Active Substance: INFLUENZA VIRUS VACCINE
     Indication: Bronchiectasis
     Route: 065

REACTIONS (3)
  - Pneumonia necrotising [Recovered/Resolved]
  - Emphysema [Recovered/Resolved]
  - Drug ineffective for unapproved indication [Unknown]
